FAERS Safety Report 6294388-7 (Version None)
Quarter: 2009Q3

REPORT INFORMATION
  Report Type: 
  Country: None (occurrence: None)
  Receive Date: 20090803
  Receipt Date: 20090724
  Transmission Date: 20100115
  Serious: Yes (Hospitalization, Other)
  Sender: FDA-Public Use
  Company Number: ZA-ABBOTT-09P-143-0584568-00

PATIENT
  Sex: Male
  Weight: 75 kg

DRUGS (4)
  1. HUMIRA [Suspect]
     Indication: CROHN'S DISEASE
     Route: 058
     Dates: start: 20090201, end: 20090703
  2. HUMIRA [Suspect]
     Indication: FISTULA
     Route: 058
     Dates: start: 20090721
  3. FOLIC ACID [Concomitant]
     Indication: DRUG USE FOR UNKNOWN INDICATION
     Route: 048
  4. METFORMIN [Concomitant]
     Indication: DIABETES MELLITUS

REACTIONS (11)
  - ANXIETY [None]
  - FREQUENT BOWEL MOVEMENTS [None]
  - HEADACHE [None]
  - HEPATIC STEATOSIS [None]
  - LIVER FUNCTION TEST ABNORMAL [None]
  - PANIC ATTACK [None]
  - PARAESTHESIA [None]
  - PYREXIA [None]
  - SINUSITIS [None]
  - SPEECH DISORDER [None]
  - VISION BLURRED [None]
